FAERS Safety Report 9384990 (Version 1)
Quarter: 2013Q3

REPORT INFORMATION
  Report Type: Spontaneous
  Country: US (occurrence: US)
  Receive Date: 20130705
  Receipt Date: 20130705
  Transmission Date: 20140515
  Serious: No
  Sender: FDA-Public Use
  Company Number: US-GLAXOSMITHKLINE-A1021335A

PATIENT
  Age: 45 Year
  Sex: Female

DRUGS (3)
  1. BENLYSTA [Suspect]
     Indication: PRODUCT USED FOR UNKNOWN INDICATION
     Dosage: 10MGK UNKNOWN
     Route: 065
  2. PREDNISONE [Concomitant]
  3. PLAQUENIL [Concomitant]

REACTIONS (1)
  - Drug ineffective [Unknown]
